FAERS Safety Report 6127542-5 (Version None)
Quarter: 2009Q1

REPORT INFORMATION
  Report Type: 
  Country: None (occurrence: None)
  Receive Date: 20090323
  Receipt Date: 20090313
  Transmission Date: 20090719
  Serious: Yes (Hospitalization)
  Sender: FDA-Public Use
  Company Number: JP-BIOGENIDEC-2008BI014977

PATIENT
  Age: 41 Year
  Sex: Female

DRUGS (20)
  1. AVONEX [Suspect]
     Indication: RELAPSING-REMITTING MULTIPLE SCLEROSIS
     Route: 030
     Dates: start: 20080517, end: 20080517
  2. AVONEX [Suspect]
     Route: 030
     Dates: start: 20080814
  3. PREDNISOLONE [Concomitant]
     Indication: RELAPSING-REMITTING MULTIPLE SCLEROSIS
     Route: 048
     Dates: start: 20080501, end: 20080501
  4. PREDNISOLONE [Concomitant]
     Route: 048
     Dates: start: 20080521, end: 20080522
  5. PREDNISOLONE [Concomitant]
     Route: 048
     Dates: start: 20080523, end: 20080523
  6. PREDNISOLONE [Concomitant]
     Route: 048
     Dates: start: 20080524, end: 20080524
  7. PREDNISOLONE [Concomitant]
     Route: 048
     Dates: start: 20080525, end: 20080525
  8. PREDNISOLONE [Concomitant]
     Route: 048
     Dates: start: 20080526, end: 20080526
  9. PREDNISOLONE [Concomitant]
     Route: 048
     Dates: start: 20080527, end: 20080527
  10. TERNELIN [Concomitant]
     Dates: start: 19991001, end: 20080526
  11. TERNELIN [Concomitant]
     Dates: start: 20080625, end: 20080811
  12. UBRETID [Concomitant]
     Dates: start: 20060113, end: 20080526
  13. UBRETID [Concomitant]
     Dates: start: 20080612, end: 20080626
  14. UBRETID [Concomitant]
     Dates: start: 20080627, end: 20080724
  15. MARZULENE [Concomitant]
     Dates: start: 19990101, end: 20080526
  16. PROTECADIN [Concomitant]
     Dates: start: 20011116, end: 20080526
  17. ALFAROL [Concomitant]
     Dates: start: 20000914, end: 20080526
  18. MAGNESIUM OXIDE [Concomitant]
     Dates: start: 20020601, end: 20080526
  19. MAGNESIUM OXIDE [Concomitant]
     Dates: start: 20080707, end: 20080730
  20. LIPITOR [Concomitant]
     Dates: start: 20030529, end: 20080520

REACTIONS (3)
  - LIVER DISORDER [None]
  - MULTIPLE SCLEROSIS RELAPSE [None]
  - PYREXIA [None]
